FAERS Safety Report 8771369 (Version 1)
Quarter: 2012Q4

REPORT INFORMATION
  Report Type: 
  Country: US (occurrence: US)
  Receive Date: 20120906
  Receipt Date: 20120906
  Transmission Date: 20130627
  Serious: Yes (Hospitalization)
  Sender: FDA-Public Use
  Company Number: US-GLAXOSMITHKLINE-A0991135A

PATIENT
  Age: 72 Year
  Sex: Female

DRUGS (15)
  1. ADVAIR [Suspect]
     Indication: CHRONIC OBSTRUCTIVE PULMONARY DISEASE
     Dosage: 1PUFF Per day
     Route: 055
     Dates: start: 2004
  2. SPIRIVA [Suspect]
  3. PROAIR HFA [Concomitant]
  4. MUCINEX [Concomitant]
  5. ALBUTEROL [Concomitant]
  6. POTASSIUM [Concomitant]
  7. OYSTER SHELL CALCIUM [Concomitant]
  8. IBUPROFEN [Concomitant]
  9. VICODIN [Concomitant]
  10. ASPIRIN [Concomitant]
  11. NARCOTIC [Concomitant]
  12. DIGOXIN [Concomitant]
  13. METOPROLOL [Concomitant]
  14. VITAMIN D3 [Concomitant]
  15. OXYGEN [Concomitant]

REACTIONS (5)
  - Pneumothorax [Recovered/Resolved]
  - Drug administration error [Recovered/Resolved]
  - Neoplasm malignant [Unknown]
  - Lung disorder [Unknown]
  - Drug ineffective [Unknown]
